FAERS Safety Report 5689898-7 (Version None)
Quarter: 2008Q1

REPORT INFORMATION
  Report Type: 
  Country: None (occurrence: None)
  Receive Date: 20080331
  Receipt Date: 20080331
  Transmission Date: 20080703
  Serious: No
  Sender: FDA-Public Use
  Company Number: None

PATIENT
  Age: 60 Year
  Sex: Male
  Weight: 138 kg

DRUGS (1)
  1. ETOPOSIDE [Suspect]
     Indication: LUNG NEOPLASM MALIGNANT
     Dosage: 184MG ONCE IV
     Route: 042
     Dates: start: 20071001, end: 20071001

REACTIONS (5)
  - COUGH [None]
  - CYANOSIS [None]
  - DYSPNOEA [None]
  - TACHYCARDIA [None]
  - WHEEZING [None]
